FAERS Safety Report 24822327 (Version 2)
Quarter: 2025Q3

REPORT INFORMATION
  Report Type: Report from Study
  Country: US (occurrence: US)
  Receive Date: 20250108
  Receipt Date: 20250803
  Transmission Date: 20251020
  Serious: Yes (Other)
  Sender: ALEXION PHARMACEUTICALS
  Company Number: US-AstraZeneca-CH-00779617A

PATIENT
  Sex: Female

DRUGS (1)
  1. CAPIVASERTIB [Suspect]
     Active Substance: CAPIVASERTIB
     Indication: Neoplasm malignant
     Dates: start: 20240424

REACTIONS (5)
  - Abscess drainage [Unknown]
  - Neoplasm malignant [Unknown]
  - Diarrhoea [Unknown]
  - Weight increased [Unknown]
  - Skin hypertrophy [Unknown]
